FAERS Safety Report 15507534 (Version 1)
Quarter: 2018Q4

REPORT INFORMATION
  Report Type: Spontaneous
  Country: US (occurrence: US)
  Receive Date: 20181016
  Receipt Date: 20181016
  Transmission Date: 20190205
  Serious: Yes (Death, Other)
  Sender: FDA-Public Use
  Company Number: US-NORTHSTAR HEALTHCARE HOLDINGS-US-2018NSR000150

PATIENT
  Age: 33 Year
  Sex: Female

DRUGS (3)
  1. PROPRANOLOL HYDROCHLORIDE. [Suspect]
     Active Substance: PROPRANOLOL HYDROCHLORIDE
     Indication: PRODUCT USED FOR UNKNOWN INDICATION
     Dosage: UNK
  2. ESCITALOPRAM [Suspect]
     Active Substance: ESCITALOPRAM OXALATE
     Indication: PRODUCT USED FOR UNKNOWN INDICATION
     Dosage: UNK
  3. LAMOTRIGINE. [Suspect]
     Active Substance: LAMOTRIGINE
     Indication: PRODUCT USED FOR UNKNOWN INDICATION
     Dosage: UNK

REACTIONS (23)
  - Tachycardia [Unknown]
  - Respiratory depression [Unknown]
  - Depressed level of consciousness [Unknown]
  - Hyperreflexia [Unknown]
  - Anion gap [Unknown]
  - Hypotension [Unknown]
  - Toxicity to various agents [Fatal]
  - Myocardial ischaemia [Unknown]
  - Agitation [Unknown]
  - Delirium [Unknown]
  - Rhabdomyolysis [Unknown]
  - Bradycardia [Unknown]
  - Thrombocytopenia [Unknown]
  - Electrocardiogram QRS complex prolonged [Unknown]
  - Coma [Unknown]
  - Hypoglycaemia [Unknown]
  - Atrioventricular block [Unknown]
  - Dystonia [Unknown]
  - Seizure [Unknown]
  - Hyperthermia [Unknown]
  - Ventricular arrhythmia [Unknown]
  - Electrocardiogram QT prolonged [Unknown]
  - Metabolic acidosis [Unknown]

NARRATIVE: CASE EVENT DATE: 2017
